FAERS Safety Report 8048763-0 (Version None)
Quarter: 2012Q1

REPORT INFORMATION
  Report Type: 
  Country: None (occurrence: None)
  Receive Date: 20120117
  Receipt Date: 20120110
  Transmission Date: 20120608
  Serious: No
  Sender: FDA-Public Use
  Company Number: US-B.I. PHARMACEUTICALS,INC./RIDGEFIELD-2012-BP-00525BP

PATIENT
  Sex: Male

DRUGS (21)
  1. LUMIGAN [Concomitant]
     Indication: MACULAR DEGENERATION
  2. NEURONTIN [Concomitant]
     Indication: NEUROPATHY PERIPHERAL
     Dosage: 2100 MG
     Route: 048
     Dates: start: 19870101
  3. VIT D2 [Concomitant]
     Indication: PROPHYLAXIS
     Dosage: 2000 MG
     Route: 048
  4. LASIX [Concomitant]
     Indication: CARDIAC DISORDER
     Dosage: 40 MG
     Route: 048
  5. MICRO-K [Concomitant]
     Indication: PROPHYLAXIS
     Dosage: 16 MG
     Route: 048
  6. LOPRESSOR [Concomitant]
     Indication: CARDIAC DISORDER
     Dosage: 100 MG
     Route: 048
  7. XYZAL [Concomitant]
     Indication: THYMUS DISORDER
     Dosage: 5 MG
     Route: 048
  8. SYSTANE ULTRA [Concomitant]
     Indication: PROPHYLAXIS
  9. ATIVAN [Concomitant]
     Indication: INSOMNIA
     Dosage: 1 MG
     Route: 048
  10. LIPITOR [Concomitant]
     Indication: BLOOD CHOLESTEROL INCREASED
     Dosage: 10 MG
     Route: 048
  11. O2 [Concomitant]
     Indication: ASTHMA
     Dosage: 2.5 RT
     Route: 055
  12. COMBIVENT [Suspect]
     Indication: ASTHMA
     Dosage: 6 PUF
     Route: 055
     Dates: start: 20120104
  13. PARLODEL [Concomitant]
     Indication: HYPOTHALAMO-PITUITARY DISORDER
     Dosage: 2.5 MG
     Route: 048
  14. AMIODARONE HCL [Concomitant]
     Indication: CARDIAC DISORDER
     Dosage: 200 MG
     Route: 048
  15. CHEMOTHERAPY [Concomitant]
     Indication: NEOPLASM MALIGNANT
     Route: 042
     Dates: start: 20120101
  16. DEXAMETHASONE TAB [Concomitant]
     Indication: NEOPLASM MALIGNANT
     Dosage: 8 MG
     Route: 048
     Dates: start: 20110801
  17. FOLIC ACID [Concomitant]
     Indication: PROPHYLAXIS
     Dosage: 1 MG
     Route: 048
  18. FERROUS SULFATE TAB [Concomitant]
     Indication: PROPHYLAXIS
     Dosage: 325 MG
     Route: 048
  19. NORCO [Concomitant]
     Indication: BACK PAIN
     Route: 048
  20. NITROSTAT [Concomitant]
     Indication: CARDIAC DISORDER
     Dosage: 0.3 MG
     Route: 060
  21. PROTONIX [Concomitant]
     Indication: ABDOMINAL DISCOMFORT
     Dosage: 80 MG
     Route: 048

REACTIONS (3)
  - LIP SWELLING [None]
  - LIP EXFOLIATION [None]
  - CHEILITIS [None]
